FAERS Safety Report 19808123 (Version 1)
Quarter: 2021Q3

REPORT INFORMATION
  Report Type: Spontaneous
  Country: US (occurrence: US)
  Receive Date: 20210903
  Receipt Date: 20210903
  Transmission Date: 20211014
  Serious: Yes (Hospitalization)
  Sender: FDA-Public Use
  Company Number: None

PATIENT
  Age: 59 Year
  Sex: Female

DRUGS (1)
  1. TETRABENAZINE 25MG SLATE RUN PHARMACEUTICALS [Suspect]
     Active Substance: TETRABENAZINE
     Indication: DYSKINESIA
     Route: 048
     Dates: start: 2020, end: 20200604

REACTIONS (3)
  - Fall [None]
  - Dysarthria [None]
  - Dizziness [None]

NARRATIVE: CASE EVENT DATE: 202105
